FAERS Safety Report 7149307-8 (Version None)
Quarter: 2010Q4

REPORT INFORMATION
  Report Type: 
  Country: None (occurrence: None)
  Receive Date: 20101209
  Receipt Date: 20101206
  Transmission Date: 20110411
  Serious: Yes (Death)
  Sender: FDA-Public Use
  Company Number: US-AMGEN-USASP2010007868

PATIENT

DRUGS (4)
  1. NPLATE [Suspect]
     Indication: IDIOPATHIC THROMBOCYTOPENIC PURPURA
     Dosage: 125 A?G, UNK
     Dates: start: 20101119, end: 20101119
  2. NPLATE [Suspect]
     Dates: start: 20101119, end: 20101119
  3. CORTICOSTEROIDS [Concomitant]
  4. RITUXIMAB [Concomitant]

REACTIONS (1)
  - DEATH [None]
